FAERS Safety Report 24887363 (Version 1)
Quarter: 2025Q1

REPORT INFORMATION
  Report Type: Spontaneous
  Country: BR (occurrence: BR)
  Receive Date: 20250127
  Receipt Date: 20250127
  Transmission Date: 20250408
  Serious: Yes (Other)
  Sender: JOHNSON AND JOHNSON
  Company Number: BR-JNJFOC-20250158445

PATIENT
  Sex: Male

DRUGS (2)
  1. STELARA [Suspect]
     Active Substance: USTEKINUMAB
     Indication: Crohn^s disease
     Dosage: LAST APPLICATION: 08-JUN-2024
     Route: 058
     Dates: start: 2022
  2. STELARA [Suspect]
     Active Substance: USTEKINUMAB

REACTIONS (8)
  - General physical health deterioration [Unknown]
  - Crohn^s disease [Unknown]
  - Hypertension [Unknown]
  - Mobility decreased [Unknown]
  - Gait disturbance [Unknown]
  - Infection [Unknown]
  - Anaemia [Unknown]
  - Product dose omission issue [Unknown]
